FAERS Safety Report 8167944-9 (Version None)
Quarter: 2012Q1

REPORT INFORMATION
  Report Type: 
  Country: None (occurrence: None)
  Receive Date: 20120227
  Receipt Date: 20120221
  Transmission Date: 20120608
  Serious: Yes (Other)
  Sender: FDA-Public Use
  Company Number: US-GLAXOSMITHKLINE-A0966716A

PATIENT
  Age: 62 Year
  Sex: Female

DRUGS (3)
  1. RESTORIL [Concomitant]
  2. ROPINIROLE [Suspect]
     Indication: RESTLESS LEGS SYNDROME
     Dosage: 5MG PER DAY
     Route: 048
     Dates: start: 20020101
  3. REQUIP [Suspect]
     Indication: RESTLESS LEGS SYNDROME
     Dosage: 5MG PER DAY
     Route: 048
     Dates: start: 20020101

REACTIONS (7)
  - APATHY [None]
  - STUPOR [None]
  - FEELING ABNORMAL [None]
  - NIGHTMARE [None]
  - RESTLESS LEGS SYNDROME [None]
  - HANGOVER [None]
  - DRUG INEFFECTIVE [None]
